FAERS Safety Report 10587363 (Version 1)
Quarter: 2014Q4

REPORT INFORMATION
  Report Type: Report from Study
  Country: FR (occurrence: FR)
  Receive Date: 20141117
  Receipt Date: 20141117
  Transmission Date: 20150529
  Serious: Yes (Congenital Anomaly)
  Sender: FDA-Public Use
  Company Number: FR-ROCHE-1490406

PATIENT
  Sex: Female
  Weight: 2.09 kg

DRUGS (6)
  1. LAMIVUDINE. [Suspect]
     Active Substance: LAMIVUDINE
     Indication: PRODUCT USED FOR UNKNOWN INDICATION
     Route: 064
  2. NEVIRAPINE. [Suspect]
     Active Substance: NEVIRAPINE
     Indication: PRODUCT USED FOR UNKNOWN INDICATION
     Route: 064
  3. TENOFOVIR DISOPROXIL FUMARATE [Suspect]
     Active Substance: TENOFOVIR DISOPROXIL FUMARATE
     Indication: PRODUCT USED FOR UNKNOWN INDICATION
     Route: 064
  4. RITONAVIR. [Suspect]
     Active Substance: RITONAVIR
     Indication: PRODUCT USED FOR UNKNOWN INDICATION
     Route: 064
  5. SAQUINAVIR [Suspect]
     Active Substance: SAQUINAVIR
     Indication: PRODUCT USED FOR UNKNOWN INDICATION
     Route: 064
  6. ZIDOVUDINE. [Suspect]
     Active Substance: ZIDOVUDINE
     Indication: PRODUCT USED FOR UNKNOWN INDICATION
     Route: 064

REACTIONS (2)
  - Foetal exposure during pregnancy [Unknown]
  - Joint hyperextension [Unknown]
